FAERS Safety Report 26120678 (Version 1)
Quarter: 2025Q4

REPORT INFORMATION
  Report Type: Spontaneous
  Country: US (occurrence: US)
  Receive Date: 20251204
  Receipt Date: 20251204
  Transmission Date: 20260118
  Serious: Yes (Other)
  Sender: MERCK SHARP & DOHME LLC
  Company Number: US-009507513-2353520

PATIENT
  Sex: Male

DRUGS (1)
  1. KEYTRUDA [Suspect]
     Active Substance: PEMBROLIZUMAB
     Dosage: ON KEYTRUDA FOR ABOUT 1 YEAR AND 2 MONTHS LONG, WITH WEEKLY INJECTIONS

REACTIONS (3)
  - Malignant neoplasm progression [Unknown]
  - Suspected counterfeit product [Unknown]
  - Therapy non-responder [Unknown]
